FAERS Safety Report 10912261 (Version 1)
Quarter: 2015Q1

REPORT INFORMATION
  Report Type: Spontaneous
  Country: US (occurrence: None)
  Receive Date: 20150310
  Receipt Date: 20150310
  Transmission Date: 20150721
  Serious: Yes (Other)
  Sender: FDA-Public Use
  Company Number: 2773552

PATIENT
  Age: 82 Year
  Sex: Male
  Weight: 97.82 kg

DRUGS (6)
  1. OXALIPLATIN INJECTION (OXALIPLATIN) [Suspect]
     Active Substance: OXALIPLATIN
     Indication: COLON CANCER
     Route: 041
     Dates: start: 20150224, end: 20150224
  2. EMEND [Concomitant]
     Active Substance: APREPITANT
  3. OXALIPLATIN INJECTION (OXALIPLATIN) [Suspect]
     Active Substance: OXALIPLATIN
     Indication: HEPATIC CANCER METASTATIC
     Route: 041
     Dates: start: 20150224, end: 20150224
  4. DEXAMETHASONE. [Concomitant]
     Active Substance: DEXAMETHASONE
  5. PALONOSETRON [Concomitant]
     Active Substance: PALONOSETRON
  6. BEVACIZUMAB [Concomitant]
     Active Substance: BEVACIZUMAB

REACTIONS (8)
  - Unresponsive to stimuli [None]
  - Miosis [None]
  - Seizure [None]
  - Urinary incontinence [None]
  - Blood pressure decreased [None]
  - Snoring [None]
  - Aphasia [None]
  - Asthenia [None]

NARRATIVE: CASE EVENT DATE: 20150224
